FAERS Safety Report 6250595-0 (Version None)
Quarter: 2009Q2

REPORT INFORMATION
  Report Type: 
  Country: None (occurrence: None)
  Receive Date: 20090626
  Receipt Date: 20090611
  Transmission Date: 20091009
  Serious: Yes (Hospitalization)
  Sender: FDA-Public Use
  Company Number: 8048043

PATIENT
  Sex: Female

DRUGS (6)
  1. KEPPRA [Suspect]
     Indication: EPILEPSY
     Dosage: 500 MG 2/D
  2. VALPROATE SODIUM [Concomitant]
  3. ERGENYL CHRONOSPHERE [Concomitant]
  4. ATROVENT [Concomitant]
  5. SULTANOL /00139501/ [Concomitant]
  6. PULMICORT-100 [Concomitant]

REACTIONS (2)
  - CONDITION AGGRAVATED [None]
  - CONVULSION [None]
